FAERS Safety Report 18386887 (Version 1)
Quarter: 2020Q4

REPORT INFORMATION
  Report Type: Spontaneous
  Country: US (occurrence: US)
  Receive Date: 20201014
  Receipt Date: 20201014
  Transmission Date: 20210114
  Serious: Yes (Death)
  Sender: FDA-Public Use
  Company Number: None

PATIENT
  Age: 60 Year
  Sex: Female
  Weight: 61.2 kg

DRUGS (27)
  1. DEXAMETHASONE. [Concomitant]
     Active Substance: DEXAMETHASONE
  2. DOCUSATE [Concomitant]
     Active Substance: DOCUSATE
  3. ENALAPRIL [Concomitant]
     Active Substance: ENALAPRIL
  4. ENOXAPARIN [Concomitant]
     Active Substance: ENOXAPARIN
  5. LACTULOSE. [Concomitant]
     Active Substance: LACTULOSE
  6. ACETMAINOPHEN [Concomitant]
  7. BACLOFEN. [Concomitant]
     Active Substance: BACLOFEN
  8. HYDRALAZINE [Concomitant]
     Active Substance: HYDRALAZINE HYDROCHLORIDE
  9. LEVETIRACETAM. [Concomitant]
     Active Substance: LEVETIRACETAM
  10. METOPROLOL TARTRATE. [Concomitant]
     Active Substance: METOPROLOL TARTRATE
  11. REMDESIVIR SOLUTION 100MG VIAL [Suspect]
     Active Substance: REMDESIVIR
     Indication: COVID-19 PNEUMONIA
     Route: 042
     Dates: start: 20200814, end: 20200814
  12. CEFTRIAXONE. [Concomitant]
     Active Substance: CEFTRIAXONE
  13. LAMOTRIGINE. [Concomitant]
     Active Substance: LAMOTRIGINE
  14. LORAZEPAM. [Concomitant]
     Active Substance: LORAZEPAM
  15. POLYETHYLENE GLYCOL [Concomitant]
     Active Substance: POLYETHYLENE GLYCOLS
  16. ALBUTEROL. [Concomitant]
     Active Substance: ALBUTEROL
  17. BISOCODYL [Concomitant]
  18. MEROPENEM. [Concomitant]
     Active Substance: MEROPENEM
  19. ONDANSETRON [Concomitant]
     Active Substance: ONDANSETRON
  20. POTASSIUM CHLORIDE. [Concomitant]
     Active Substance: POTASSIUM CHLORIDE
  21. SODIUM PHOSPHATE [Concomitant]
     Active Substance: SODIUM PHOSPHATE
  22. VALPROIC ACID NA [Concomitant]
  23. HYDROCODONE-CHLORPHENIRAMINE [Concomitant]
  24. OXCARBAZEPINE. [Concomitant]
     Active Substance: OXCARBAZEPINE
  25. PIPERACILLIN AND TAZOBACTAM [Concomitant]
     Active Substance: PIPERACILLIN SODIUM\TAZOBACTAM SODIUM
  26. REMDESIVIR SOLUTION 100MG VIAL [Suspect]
     Active Substance: REMDESIVIR
     Indication: COVID-19 PNEUMONIA
     Route: 042
     Dates: start: 20200815, end: 20200818
  27. SERTRALINE [Concomitant]
     Active Substance: SERTRALINE HYDROCHLORIDE

REACTIONS (6)
  - Lethargy [None]
  - Fatigue [None]
  - Pyrexia [None]
  - Chest X-ray abnormal [None]
  - Unresponsive to stimuli [None]
  - Seizure like phenomena [None]

NARRATIVE: CASE EVENT DATE: 20200819
